FAERS Safety Report 8867006 (Version 1)
Quarter: 2012Q4

REPORT INFORMATION
  Report Type: 
  Country: US (occurrence: US)
  Receive Date: 20121025
  Receipt Date: 20121025
  Transmission Date: 20130627
  Serious: No
  Sender: FDA-Public Use
  Company Number: US-AMGEN-USASP2012014174

PATIENT
  Sex: Female

DRUGS (18)
  1. ENBREL [Suspect]
     Indication: PRODUCT USED FOR UNKNOWN INDICATION
     Dosage: 50 mg, qwk
     Route: 058
     Dates: start: 201108
  2. AMBIEN [Concomitant]
     Dosage: 5 mg, UNK
  3. FLEXERIL                           /00428402/ [Concomitant]
     Dosage: 5 mg, UNK
  4. ALBUTEROL                          /00139501/ [Concomitant]
     Dosage: 90 mug, UNK
  5. DEXILANT [Concomitant]
     Dosage: 30 mg, UNK
  6. LIDEX [Concomitant]
     Dosage: 0.05 %, UNK
  7. FLONASE [Concomitant]
     Dosage: 0.05 %, UNK
  8. GABAPENTIN [Concomitant]
     Dosage: 100 mg, UNK
  9. ATARAX                             /00058401/ [Concomitant]
  10. LEVOXYL [Concomitant]
     Dosage: 100 mug, UNK
  11. MULTIVITAMIN                       /00097801/ [Concomitant]
  12. CALCIUM [Concomitant]
     Dosage: UNK
  13. VIT D [Concomitant]
  14. MAGNESIUM [Concomitant]
     Dosage: 300 mg, UNK
  15. ZINC [Concomitant]
     Dosage: 30 mg, UNK
  16. FISH OIL [Concomitant]
  17. PREDNISONE [Concomitant]
     Dosage: 5 mg, UNK
  18. PLAQUENIL                          /00072602/ [Concomitant]
     Dosage: 200 mg, UNK

REACTIONS (3)
  - Viral infection [Unknown]
  - Nasopharyngitis [Unknown]
  - Lower respiratory tract infection [Unknown]
